FAERS Safety Report 21436373 (Version 1)
Quarter: 2022Q4

REPORT INFORMATION
  Report Type: Spontaneous
  Country: US (occurrence: US)
  Receive Date: 20221010
  Receipt Date: 20221010
  Transmission Date: 20230112
  Serious: Yes (Death, Other)
  Sender: FDA-Public Use
  Company Number: US-BRISTOL-MYERS SQUIBB COMPANY-2022-117409

PATIENT
  Age: 58 Year
  Sex: Female
  Weight: 81.7 kg

DRUGS (4)
  1. POMALYST [Suspect]
     Active Substance: POMALIDOMIDE
     Indication: Plasma cell myeloma
     Dosage: DOSE : 3MG;     FREQ : 3 WEEKS ON 1 WEEK OFF
     Route: 048
     Dates: start: 20220314
  2. ELIQUIS [Suspect]
     Active Substance: APIXABAN
     Indication: Product used for unknown indication
     Route: 065
  3. RISPERIDONE [Concomitant]
     Active Substance: RISPERIDONE
  4. ACYCLOVIR [Concomitant]
     Active Substance: ACYCLOVIR

REACTIONS (1)
  - Death [Fatal]

NARRATIVE: CASE EVENT DATE: 20220928
